FAERS Safety Report 5283162-6 (Version None)
Quarter: 2007Q1

REPORT INFORMATION
  Report Type: 
  Country: None (occurrence: None)
  Receive Date: 20070327
  Receipt Date: 20070320
  Transmission Date: 20070707
  Serious: Yes (Hospitalization)
  Sender: FDA-Public Use
  Company Number: 233569

PATIENT
  Age: 64 Year
  Sex: Female
  Weight: 60 kg

DRUGS (6)
  1. MABTHERA (RITUXIMAB) CONC FOR SOLUTION FOR INFUSION [Suspect]
     Indication: T-CELL LYMPHOMA
     Dosage: 700 MG UNK, INTRAVENOUS
     Route: 042
     Dates: start: 20060412
  2. CYCLOPHOSPHAMIDE [Suspect]
     Indication: T-CELL LYMPHOMA
     Dosage: 1400 MG UNK, INTRAVENOUS
     Route: 042
     Dates: start: 20060412
  3. DOXORUBICIN HCL [Suspect]
     Indication: T-CELL LYMPHOMA
     Dosage: 90 MG UNK, INTRAVENOUS
     Route: 042
     Dates: start: 20060412
  4. VINCRISTINE [Suspect]
     Indication: T-CELL LYMPHOMA
     Dosage: 2 MG UNK, INTRAVENOUS
     Route: 042
     Dates: start: 20060412
  5. PREDNISONE TAB [Suspect]
     Indication: T-CELL LYMPHOMA
     Dosage: 70 MG, UNK, ORAL
     Route: 048
     Dates: start: 20060412
  6. METHOTREXATE [Suspect]
     Indication: T-CELL LYMPHOMA
     Dosage: 15 MG UNK, INTRAVENOUS
     Route: 042
     Dates: start: 20060505, end: 20060816

REACTIONS (3)
  - FEBRILE BONE MARROW APLASIA [None]
  - LUNG DISORDER [None]
  - NEUTROPENIA [None]
